FAERS Safety Report 9663071 (Version 1)
Quarter: 2013Q4

REPORT INFORMATION
  Report Type: Spontaneous
  Country: US (occurrence: US)
  Receive Date: 20131031
  Receipt Date: 20131031
  Transmission Date: 20140711
  Serious: No
  Sender: FDA-Public Use
  Company Number: US-009507513-1310USA012184

PATIENT
  Age: 41 Year
  Sex: Male
  Weight: 77.98 kg

DRUGS (2)
  1. SAPHRIS [Suspect]
     Indication: BIPOLAR I DISORDER
     Dosage: 5MG / TWICE DAILY
     Route: 060
     Dates: start: 20131019, end: 20131019
  2. XANAX [Concomitant]

REACTIONS (4)
  - Agitation [Recovered/Resolved]
  - Anger [Recovered/Resolved]
  - Confusional state [Recovered/Resolved]
  - Drooling [Recovered/Resolved]
